FAERS Safety Report 5772045-0 (Version None)
Quarter: 2008Q2

REPORT INFORMATION
  Report Type: 
  Country: None (occurrence: None)
  Receive Date: 20080601
  Receipt Date: 20080305
  Transmission Date: 20081010
  Serious: No
  Sender: FDA-Public Use
  Company Number: US200803000963

PATIENT
  Age: 48 Year
  Sex: Male
  Weight: 225 kg

DRUGS (9)
  1. BYETTA [Suspect]
     Indication: TYPE 2 DIABETES MELLITUS
     Dosage: 10 UG, 2/D, SUBCUTANEOUS
     Route: 058
     Dates: start: 20060101
  2. ACTOS /USA/ (PIOGLITAZONE HYDROCHLORIDE) [Concomitant]
  3. GLUCOPHAGE /USA/ (METFORMIN HYDROCHLORIDE) [Concomitant]
  4. LASIX /USA/ (FUROSEMIDE) [Concomitant]
  5. LISINOPRIL /USA/ (LISINOPRIL) [Concomitant]
  6. ISOSORBIDE (ISOSORBIDE) [Concomitant]
  7. PLAVIX [Concomitant]
  8. POTASSIUM (POTASSIUM) [Concomitant]
  9. ASPIRIN /USA/ (ACETYLSALICYLIC ACID) [Concomitant]

REACTIONS (2)
  - BLOOD PRESSURE DECREASED [None]
  - WEIGHT DECREASED [None]
